FAERS Safety Report 23021791 (Version 5)
Quarter: 2024Q4

REPORT INFORMATION
  Report Type: Report from Study
  Country: US (occurrence: US)
  Receive Date: 20231003
  Receipt Date: 20241230
  Transmission Date: 20250115
  Serious: Yes (Hospitalization, Other)
  Sender: NOVARTIS
  Company Number: US-002147023-NVSC2023US211885

PATIENT
  Age: 46 Year
  Sex: Female

DRUGS (1)
  1. KESIMPTA [Suspect]
     Active Substance: OFATUMUMAB
     Indication: Product used for unknown indication
     Dosage: UNK
     Route: 065

REACTIONS (7)
  - Anaemia [Unknown]
  - Multiple sclerosis [Unknown]
  - Lower limb fracture [Unknown]
  - Fall [Unknown]
  - Abdominal discomfort [Unknown]
  - Retching [Unknown]
  - Weight decreased [Unknown]

NARRATIVE: CASE EVENT DATE: 20240719
